FAERS Safety Report 5865993-4 (Version None)
Quarter: 2008Q3

REPORT INFORMATION
  Report Type: 
  Country: None (occurrence: None)
  Receive Date: 20080829
  Receipt Date: 20080820
  Transmission Date: 20090109
  Serious: Yes (Hospitalization)
  Sender: FDA-Public Use
  Company Number: DE-PFIZER INC-2008056472

PATIENT
  Sex: Female
  Weight: 55 kg

DRUGS (1)
  1. LYRICA [Suspect]
     Indication: NEURALGIA
     Dosage: DAILY DOSE:150MG
     Route: 048

REACTIONS (5)
  - CARDIOVASCULAR DISORDER [None]
  - DIZZINESS [None]
  - DYSPNOEA [None]
  - FALL [None]
  - THROMBOSIS [None]
